FAERS Safety Report 7927234-3 (Version None)
Quarter: 2011Q4

REPORT INFORMATION
  Report Type: 
  Country: None (occurrence: None)
  Receive Date: 20111117
  Receipt Date: 20111117
  Transmission Date: 20120403
  Serious: No
  Sender: FDA-Public Use
  Company Number: None

PATIENT
  Age: 64 Year
  Sex: Female

DRUGS (1)
  1. NITROFURANTOIN [Suspect]
     Dates: start: 20070501, end: 20090814

REACTIONS (4)
  - HEPATITIS FULMINANT [None]
  - LIVER INJURY [None]
  - LIVER TRANSPLANT [None]
  - JAUNDICE [None]
